FAERS Safety Report 10497726 (Version 1)
Quarter: 2014Q4

REPORT INFORMATION
  Report Type: Spontaneous
  Country: US (occurrence: None)
  Receive Date: 20141002
  Receipt Date: 20141002
  Transmission Date: 20150528
  Serious: Yes (Hospitalization, Other)
  Sender: FDA-Public Use
  Company Number: 2014-US-012438

PATIENT
  Age: 72 Year
  Sex: Male

DRUGS (1)
  1. XYREM [Suspect]
     Active Substance: SODIUM OXYBATE
     Indication: NARCOLEPSY
     Route: 048
     Dates: start: 201303

REACTIONS (7)
  - Coronary artery occlusion [None]
  - Drug ineffective [None]
  - Therapy cessation [None]
  - Asthenia [None]
  - Cerebrovascular accident [None]
  - Product quality issue [None]
  - Carotid artery stenosis [None]
